FAERS Safety Report 20919669 (Version 2)
Quarter: 2022Q2

REPORT INFORMATION
  Report Type: Spontaneous
  Country: US (occurrence: US)
  Receive Date: 20220606
  Receipt Date: 20220607
  Transmission Date: 20220720
  Serious: No
  Sender: FDA-Public Use
  Company Number: US-PFIZER INC-202200793598

PATIENT
  Age: 58 Year
  Sex: Female
  Weight: 90.72 kg

DRUGS (1)
  1. TOVIAZ [Suspect]
     Active Substance: FESOTERODINE FUMARATE
     Dosage: 8 MG

REACTIONS (3)
  - Blood pressure increased [Unknown]
  - Movement disorder [Unknown]
  - Paraesthesia [Unknown]
